FAERS Safety Report 26140095 (Version 1)
Quarter: 2025Q4

REPORT INFORMATION
  Report Type: Spontaneous
  Country: CA (occurrence: CA)
  Receive Date: 20251210
  Receipt Date: 20251210
  Transmission Date: 20260118
  Serious: Yes (Other)
  Sender: TEVA
  Company Number: CA-TEVA-VS-3401497

PATIENT
  Age: 31 Year
  Sex: Female

DRUGS (2)
  1. LISDEXAMFETAMINE DIMESYLATE [Suspect]
     Active Substance: LISDEXAMFETAMINE DIMESYLATE
     Indication: Product used for unknown indication
     Dosage: FREQUENCY: AS REQUIRED
     Route: 048
  2. LISDEXAMFETAMINE DIMESYLATE [Suspect]
     Active Substance: LISDEXAMFETAMINE DIMESYLATE
     Indication: Product used for unknown indication
     Dosage: FREQUENCY: AS REQUIRED
     Route: 048

REACTIONS (4)
  - Anxiety [Recovered/Resolved]
  - Agitation [Recovered/Resolved]
  - Depressed mood [Recovered/Resolved]
  - Irritability [Recovered/Resolved]
